FAERS Safety Report 8019294-9 (Version None)
Quarter: 2012Q1

REPORT INFORMATION
  Report Type: 
  Country: None (occurrence: None)
  Receive Date: 20120103
  Receipt Date: 20111222
  Transmission Date: 20120608
  Serious: Yes (Hospitalization)
  Sender: FDA-Public Use
  Company Number: US-ELI_LILLY_AND_COMPANY-US201111007133

PATIENT
  Sex: Male
  Weight: 82.72 kg

DRUGS (6)
  1. TRIMIX [Concomitant]
  2. GEMCITABINE HYDROCHLORIDE [Suspect]
     Indication: BLADDER CANCER
     Dosage: 2 G, UNK
     Dates: start: 20111025
  3. COMBIVENT [Concomitant]
  4. CHANTIX [Concomitant]
  5. DOXYCYL [Concomitant]
     Dosage: 110 MG, BID
  6. PREDNISONE [Concomitant]

REACTIONS (1)
  - HAEMATURIA [None]
